FAERS Safety Report 13035399 (Version 5)
Quarter: 2017Q2

REPORT INFORMATION
  Report Type: Spontaneous
  Country: TW (occurrence: TW)
  Receive Date: 20161216
  Receipt Date: 20170620
  Transmission Date: 20170830
  Serious: Yes (Other)
  Sender: FDA-Public Use
  Company Number: TW-PFIZER INC-2016252713

PATIENT
  Age: 58 Year
  Sex: Male

DRUGS (2)
  1. SUTENT [Suspect]
     Active Substance: SUNITINIB MALATE
     Indication: RENAL CELL CARCINOMA
     Dosage: 50 MG, CYCLIC (ONCE DAILY FOR TWO WEEKS ON AND ONE WEEK OFF)
     Route: 048
     Dates: start: 20160420, end: 20161109
  2. SUTENT [Suspect]
     Active Substance: SUNITINIB MALATE
     Dosage: 50 MG, CYCLIC  (ONCE DAILY FOR TWO WEEKS ON AND ONE WEEK OFF)
     Route: 048
     Dates: start: 20161221

REACTIONS (6)
  - Palmar-plantar erythrodysaesthesia syndrome [Unknown]
  - Herpes zoster [Recovering/Resolving]
  - Dysgeusia [Recovered/Resolved]
  - Decreased appetite [Unknown]
  - Hepatitis B reactivation [Recovering/Resolving]
  - Diarrhoea [Unknown]

NARRATIVE: CASE EVENT DATE: 201701
